FAERS Safety Report 4932464-9 (Version None)
Quarter: 2006Q1

REPORT INFORMATION
  Report Type: 
  Country: None (occurrence: None)
  Receive Date: 20060303
  Receipt Date: 20060222
  Transmission Date: 20060701
  Serious: Yes (Hospitalization)
  Sender: FDA-Public Use
  Company Number: FR-MERCK-0602FRA00088

PATIENT
  Age: 77 Year
  Sex: Male

DRUGS (9)
  1. ZOCOR [Suspect]
     Indication: HYPERCHOLESTEROLAEMIA
     Route: 048
     Dates: end: 20051118
  2. OMEPRAZOLE SODIUM [Suspect]
     Route: 048
     Dates: end: 20051118
  3. GABAPENTIN [Suspect]
     Indication: EPILEPSY
     Route: 065
     Dates: start: 20051110, end: 20051121
  4. RIVASTIGMINE [Suspect]
     Indication: DEMENTIA ALZHEIMER'S TYPE
     Route: 048
     Dates: end: 20051118
  5. ASPIRIN LYSINE [Concomitant]
     Indication: THROMBOSIS PROPHYLAXIS
     Route: 048
     Dates: start: 19940101, end: 20051118
  6. METHYLPREDNISOLONE [Suspect]
     Route: 048
     Dates: start: 20051110, end: 20051127
  7. ALFACALCIDOL [Concomitant]
     Route: 048
     Dates: end: 20051118
  8. NICORANDIL [Concomitant]
     Indication: PROPHYLAXIS
     Route: 048
  9. LEVOTHYROXINE SODIUM [Concomitant]
     Indication: HYPOTHYROIDISM
     Route: 048

REACTIONS (4)
  - ABNORMAL BEHAVIOUR [None]
  - ANXIETY [None]
  - EPILEPSY [None]
  - OBSESSIVE THOUGHTS [None]
